FAERS Safety Report 9506275 (Version 1)
Quarter: 2013Q1

REPORT INFORMATION
  Report Type: Spontaneous
  Country: US (occurrence: None)
  Receive Date: 20130301
  Receipt Date: 20130301
  Transmission Date: 20140127
  Serious: Yes (Hospitalization, Other)
  Sender: FDA-Public Use
  Company Number: RB-41771-2012

PATIENT
  Age: 24 Year
  Sex: Male

DRUGS (1)
  1. SUBOXONE [Suspect]
     Indication: DRUG DEPENDENCE
     Dosage: (UNKNOWN DOSAGE DETAISL SUBLINGUAL)
     Dates: end: 201206

REACTIONS (2)
  - Drug dependence [None]
  - Abscess limb [None]
